FAERS Safety Report 11545835 (Version 3)
Quarter: 2015Q4

REPORT INFORMATION
  Report Type: Spontaneous
  Country: US (occurrence: US)
  Receive Date: 20150924
  Receipt Date: 20151214
  Transmission Date: 20160304
  Serious: Yes (Hospitalization, Other)
  Sender: FDA-Public Use
  Company Number: US-GLAXOSMITHKLINE INC.-US2015GSK136036

PATIENT
  Sex: Male

DRUGS (3)
  1. ADVAIR HFA [Suspect]
     Active Substance: FLUTICASONE PROPIONATE\SALMETEROL XINAFOATE
     Indication: PNEUMONIA
     Dosage: UNK, U
     Dates: start: 201101
  2. ADVAIR HFA [Suspect]
     Active Substance: FLUTICASONE PROPIONATE\SALMETEROL XINAFOATE
     Dosage: UNK, BID
     Dates: start: 2015
  3. ADVAIR HFA [Suspect]
     Active Substance: FLUTICASONE PROPIONATE\SALMETEROL XINAFOATE
     Indication: EMPHYSEMA
     Dosage: 1 PUFF(S), PRN
     Dates: start: 2013

REACTIONS (23)
  - Pulmonary function test abnormal [Unknown]
  - Drug ineffective [Not Recovered/Not Resolved]
  - Gastrooesophageal reflux disease [Not Recovered/Not Resolved]
  - Dyspepsia [Not Recovered/Not Resolved]
  - Speech disorder [Unknown]
  - Weight decreased [Unknown]
  - General physical health deterioration [Unknown]
  - Catheterisation cardiac abnormal [Not Recovered/Not Resolved]
  - Dyspnoea exertional [Not Recovered/Not Resolved]
  - Dysgeusia [Unknown]
  - Arrhythmia [Unknown]
  - Clostridium difficile infection [Unknown]
  - Chronic obstructive pulmonary disease [Not Recovered/Not Resolved]
  - Inhalation therapy [Unknown]
  - Pain [Not Recovered/Not Resolved]
  - Mobility decreased [Not Recovered/Not Resolved]
  - Atrial fibrillation [Unknown]
  - Pneumonia [Unknown]
  - Condition aggravated [Unknown]
  - Dry mouth [Not Recovered/Not Resolved]
  - Coronary artery occlusion [Recovering/Resolving]
  - Dyspnoea [Not Recovered/Not Resolved]
  - Weight increased [Unknown]

NARRATIVE: CASE EVENT DATE: 2013
